FAERS Safety Report 5070007-2 (Version None)
Quarter: 2006Q3

REPORT INFORMATION
  Report Type: 
  Country: None (occurrence: None)
  Receive Date: 20060731
  Receipt Date: 20060720
  Transmission Date: 20061208
  Serious: Yes (Other)
  Sender: FDA-Public Use
  Company Number: 227783

PATIENT
  Age: 19 Year
  Sex: Female

DRUGS (1)
  1. XOLAIR [Suspect]
     Indication: ASTHMA
     Dosage: 300 MG, Q4W, SUBCUTANEOUS
     Route: 058
     Dates: start: 20060102

REACTIONS (10)
  - BLOOD IMMUNOGLOBULIN E INCREASED [None]
  - COMPLEMENT FACTOR INCREASED [None]
  - DISEASE RECURRENCE [None]
  - IMMUNE COMPLEX LEVEL INCREASED [None]
  - INFLUENZA LIKE ILLNESS [None]
  - INJECTION SITE REACTION [None]
  - INTERLEUKIN LEVEL INCREASED [None]
  - MIGRAINE [None]
  - SERUM SICKNESS [None]
  - SKIN REACTION [None]
